FAERS Safety Report 5227892-0 (Version None)
Quarter: 2007Q1

REPORT INFORMATION
  Report Type: 
  Country: None (occurrence: None)
  Receive Date: 20070202
  Receipt Date: 20070118
  Transmission Date: 20070707
  Serious: Yes (Death)
  Sender: FDA-Public Use
  Company Number: PFIZER INC-2006143187

PATIENT
  Sex: Female
  Weight: 60 kg

DRUGS (11)
  1. IRINOTECAN HCL [Suspect]
     Indication: NON-SMALL CELL LUNG CANCER
     Dosage: TEXT:80 MG/BODY
     Route: 042
     Dates: start: 20061019, end: 20061026
  2. IRINOTECAN HCL [Suspect]
     Indication: HEPATIC NEOPLASM MALIGNANT
  3. UFT [Suspect]
     Indication: NON-SMALL CELL LUNG CANCER
     Route: 048
     Dates: start: 20061019, end: 20061026
  4. UFT [Suspect]
     Indication: HEPATIC NEOPLASM MALIGNANT
  5. TAKEPRON [Concomitant]
     Dosage: DAILY DOSE:15MG-FREQ:ONCE A DAY AFTER BREAKFAST
     Route: 048
  6. ALESION [Concomitant]
     Dosage: DAILY DOSE:20MG-FREQ:ONCE A DAY AFTER BREAKFAST
     Route: 048
     Dates: start: 20061026
  7. DIART [Concomitant]
     Dosage: DAILY DOSE:60MG-FREQ:ONCE A DAY AFTER BREAKFAST
     Route: 048
     Dates: start: 20061026
  8. ALOSENN [Concomitant]
     Dosage: DAILY DOSE:1GRAM-FREQ:ONCE A DAY AT BED TIME
     Route: 048
     Dates: start: 20061026
  9. LENDORMIN [Concomitant]
     Dosage: DAILY DOSE:.25MG-FREQ:ONCE A DAY AT BED TIME
     Route: 048
     Dates: start: 20061026
  10. LACTULOSE [Concomitant]
     Dosage: DAILY DOSE:60ML-FREQ:THREE TIMES A DAY AFTER EACH MEAL
     Route: 048
     Dates: start: 20061026
  11. MARZULENE [Concomitant]
     Dosage: DAILY DOSE:1GRAM-FREQ:TWICE A DAY AFTER BREAKFAST/DINNER
     Route: 048
     Dates: start: 20061026

REACTIONS (3)
  - MULTI-ORGAN FAILURE [None]
  - PANCYTOPENIA [None]
  - SEPTIC SHOCK [None]
